FAERS Safety Report 16323034 (Version 3)
Quarter: 2019Q2

REPORT INFORMATION
  Report Type: Spontaneous
  Country: US (occurrence: US)
  Receive Date: 20190517
  Receipt Date: 20190626
  Transmission Date: 20190711
  Serious: Yes (Other)
  Sender: FDA-Public Use
  Company Number: US-AUROBINDO-AUR-APL-2019-027287

PATIENT

DRUGS (6)
  1. PAROXETINE. [Suspect]
     Active Substance: PAROXETINE
     Indication: MAJOR DEPRESSION
     Dosage: 20 MILLIGRAM, ONCE A DAY
     Route: 065
  2. HYDROXYZINE [Suspect]
     Active Substance: HYDROXYZINE HYDROCHLORIDE
     Indication: MAJOR DEPRESSION
  3. PAROXETINE. [Suspect]
     Active Substance: PAROXETINE
     Indication: GENERALISED ANXIETY DISORDER
     Dosage: 30 MILLIGRAM, ONCE A DAY, UPTITRATED OVER A 3-WEEK PERIOD
     Route: 065
  4. HYDROXYZINE [Suspect]
     Active Substance: HYDROXYZINE HYDROCHLORIDE
     Indication: GENERALISED ANXIETY DISORDER
  5. HYDROXYZINE [Suspect]
     Active Substance: HYDROXYZINE HYDROCHLORIDE
     Indication: ANXIETY
     Dosage: 50 MILLIGRAM, TWO TIMES A DAY (12 HOUR)
     Route: 065
  6. PAROXETINE. [Suspect]
     Active Substance: PAROXETINE
     Indication: ANXIETY
     Dosage: 10 MILLIGRAM, ONCE A DAY
     Route: 065

REACTIONS (18)
  - Anxiety [Recovered/Resolved]
  - Tachycardia [Recovered/Resolved]
  - Paraesthesia [Recovered/Resolved]
  - Serotonin syndrome [Recovered/Resolved]
  - Epistaxis [Recovered/Resolved]
  - Panic attack [Recovered/Resolved]
  - Hallucination [Recovered/Resolved]
  - Fatigue [Recovered/Resolved]
  - Tremor [Recovered/Resolved]
  - Muscle twitching [Recovered/Resolved]
  - Tachyphrenia [Recovered/Resolved]
  - Asthenia [Recovered/Resolved]
  - Hyperreflexia [Recovered/Resolved]
  - Arthralgia [Recovered/Resolved]
  - Insomnia [Recovered/Resolved]
  - Pain [Recovered/Resolved]
  - Hot flush [Recovered/Resolved]
  - Crepitations [Recovered/Resolved]
